FAERS Safety Report 6119762-0 (Version None)
Quarter: 2009Q1

REPORT INFORMATION
  Report Type: 
  Country: None (occurrence: None)
  Receive Date: 20090311
  Receipt Date: 20090227
  Transmission Date: 20090719
  Serious: Yes (Hospitalization)
  Sender: FDA-Public Use
  Company Number: 005783

PATIENT
  Age: 71 Year
  Sex: Female

DRUGS (3)
  1. PLETAL [Suspect]
     Dosage: 200 MG, DAILY DOSE, ORAL
     Route: 048
     Dates: start: 20070218, end: 20070914
  2. ASPIRIN [Concomitant]
  3. LANSOPRAZOLE [Concomitant]

REACTIONS (3)
  - ANAEMIA [None]
  - COLITIS COLLAGENOUS [None]
  - DEHYDRATION [None]
